FAERS Safety Report 5298405-2 (Version None)
Quarter: 2007Q2

REPORT INFORMATION
  Report Type: 
  Country: None (occurrence: None)
  Receive Date: 20070416
  Receipt Date: 20070407
  Transmission Date: 20071010
  Serious: Yes (Hospitalization)
  Sender: FDA-Public Use
  Company Number: AU-PFIZER INC-2007028084

PATIENT
  Sex: Female

DRUGS (2)
  1. ZOLOFT [Suspect]
  2. MICROGYNON [Interacting]

REACTIONS (5)
  - BLOOD PRESSURE INCREASED [None]
  - DRUG INTERACTION [None]
  - FEELING HOT [None]
  - HEART RATE INCREASED [None]
  - NERVOUSNESS [None]
